FAERS Safety Report 9179577 (Version 1)
Quarter: 2012Q4

REPORT INFORMATION
  Report Type: 
  Country: US (occurrence: US)
  Receive Date: 20121029
  Receipt Date: 20121029
  Transmission Date: 20130627
  Serious: Yes (Hospitalization)
  Sender: FDA-Public Use
  Company Number: US-GLAXOSMITHKLINE-A0776442A

PATIENT
  Sex: Male

DRUGS (1)
  1. AVANDIA [Suspect]
     Indication: DIABETES MELLITUS
     Route: 048
     Dates: start: 20030102, end: 20061013

REACTIONS (7)
  - Myocardial infarction [Unknown]
  - Coagulopathy [Unknown]
  - Blood cholesterol increased [Unknown]
  - Cardiovascular disorder [Unknown]
  - Hyperlipidaemia [Unknown]
  - Hepatitis [Unknown]
  - Anaemia [Unknown]
